FAERS Safety Report 9202592 (Version 1)
Quarter: 2013Q2

REPORT INFORMATION
  Report Type: Spontaneous
  Country: US (occurrence: US)
  Receive Date: 20130401
  Receipt Date: 20130401
  Transmission Date: 20140414
  Serious: Yes (Hospitalization, Other)
  Sender: FDA-Public Use
  Company Number: US-ELI_LILLY_AND_COMPANY-US201303008297

PATIENT
  Sex: Male

DRUGS (1)
  1. HUMULIN REGULAR [Suspect]
     Dosage: UNK, UNKNOWN

REACTIONS (1)
  - Myocardial infarction [Unknown]
